FAERS Safety Report 14689506 (Version 1)
Quarter: 2018Q1

REPORT INFORMATION
  Report Type: Spontaneous
  Country: US (occurrence: US)
  Receive Date: 20180328
  Receipt Date: 20180328
  Transmission Date: 20180509
  Serious: Yes (Other)
  Sender: FDA-Public Use
  Company Number: US-BRISTOL-MYERS SQUIBB COMPANY-BMS-2018-025480

PATIENT
  Age: 56 Year
  Sex: Female
  Weight: 88.4 kg

DRUGS (2)
  1. ORENCIA [Suspect]
     Active Substance: ABATACEPT
     Indication: RHEUMATOID ARTHRITIS
     Dosage: 125 MG, QWK
     Route: 058
     Dates: start: 201703
  2. NORCO [Concomitant]
     Active Substance: ACETAMINOPHEN\HYDROCODONE BITARTRATE
     Indication: PAIN
     Route: 065

REACTIONS (9)
  - Malaise [Unknown]
  - Ankle fracture [Recovering/Resolving]
  - Abdominal pain upper [Unknown]
  - Fibromyalgia [Unknown]
  - Condition aggravated [Unknown]
  - Fall [Unknown]
  - Drug ineffective [Unknown]
  - Headache [Unknown]
  - Device issue [Unknown]

NARRATIVE: CASE EVENT DATE: 201711
